FAERS Safety Report 12884260 (Version 1)
Quarter: 2016Q4

REPORT INFORMATION
  Report Type: Spontaneous
  Country: US (occurrence: US)
  Receive Date: 20161024
  Receipt Date: 20161024
  Transmission Date: 20170207
  Serious: Yes (Hospitalization)
  Sender: FDA-Public Use
  Company Number: None

PATIENT
  Age: 66 Year
  Sex: Male
  Weight: 117.1 kg

DRUGS (1)
  1. DABIGATRAN [Suspect]
     Active Substance: DABIGATRAN
     Indication: ATRIAL FIBRILLATION
     Route: 048
     Dates: start: 20130819, end: 20160920

REACTIONS (8)
  - Hypotension [None]
  - Incisional drainage [None]
  - Anaemia [None]
  - Occult blood positive [None]
  - Haemorrhage [None]
  - Faeces discoloured [None]
  - Joint debridement [None]
  - Acute kidney injury [None]

NARRATIVE: CASE EVENT DATE: 20160916
